FAERS Safety Report 6893552-3 (Version None)
Quarter: 2010Q3

REPORT INFORMATION
  Report Type: 
  Country: None (occurrence: None)
  Receive Date: 20100731
  Receipt Date: 20091014
  Transmission Date: 20110219
  Serious: No
  Sender: FDA-Public Use
  Company Number: US-PFIZER INC-2009242817

PATIENT
  Sex: Female
  Weight: 77.1 kg

DRUGS (6)
  1. LIPITOR [Suspect]
     Indication: BLOOD CHOLESTEROL INCREASED
     Dosage: 10 MG, 1X/DAY
     Route: 048
     Dates: start: 20070301, end: 20090430
  2. ACETYLSALICYLIC ACID [Concomitant]
     Dosage: 81 MG, 1X/DAY
     Route: 048
  3. IBUPROFEN [Concomitant]
     Indication: ARTHRITIS
     Dosage: 200 MG, UNK
     Route: 048
     Dates: end: 20090423
  4. PRILOSEC [Concomitant]
     Indication: GASTROOESOPHAGEAL REFLUX DISEASE
     Dosage: UNK
     Route: 048
     Dates: start: 20071018
  5. TOPROL-XL [Concomitant]
     Indication: BLOOD PRESSURE ABNORMAL
     Dosage: 100 MG, UNK
     Route: 048
     Dates: start: 20040701
  6. VALIUM [Concomitant]
     Indication: ANXIETY
     Dosage: 10 MG, AS NEEDED
     Dates: start: 20080101

REACTIONS (1)
  - TRANSAMINASES INCREASED [None]
